FAERS Safety Report 4482386-5 (Version None)
Quarter: 2004Q4

REPORT INFORMATION
  Report Type: 
  Country: None (occurrence: None)
  Receive Date: 20041022
  Receipt Date: 20031120
  Transmission Date: 20050328
  Serious: No
  Sender: FDA-Public Use
  Company Number: US-BRISTOL-MYERS SQUIBB COMPANY-12440426

PATIENT
  Age: 15 Year
  Sex: Male
  Weight: 55 kg

DRUGS (3)
  1. BUSPAR [Suspect]
     Indication: ANXIETY
     Dosage: 5MG IN MORNING 10MG AT NIGHT
     Route: 048
     Dates: start: 20030901
  2. DEPAKOTE [Concomitant]
     Dosage: TAKEN FOR ^YEARS.^
  3. ADDERALL 10 [Concomitant]

REACTIONS (1)
  - HEPATIC ENZYME INCREASED [None]
